FAERS Safety Report 7277412-4 (Version None)
Quarter: 2011Q1

REPORT INFORMATION
  Report Type: 
  Country: None (occurrence: None)
  Receive Date: 20110207
  Receipt Date: 20110128
  Transmission Date: 20110831
  Serious: Yes (Hospitalization, Other)
  Sender: FDA-Public Use
  Company Number: JP-JNJFOC-20110201268

PATIENT
  Sex: Female

DRUGS (10)
  1. ZANTAC [Concomitant]
     Route: 042
  2. LANTUS [Concomitant]
     Route: 058
  3. NORVASC [Concomitant]
     Route: 065
  4. CRAVIT [Suspect]
     Indication: PYOTHORAX
     Route: 041
  5. CIPROFLOXACIN [Suspect]
     Indication: PRODUCT USED FOR UNKNOWN INDICATION
     Route: 065
  6. FLAGYL [Suspect]
     Indication: PRODUCT USED FOR UNKNOWN INDICATION
     Route: 065
  7. VANCOMYCIN HYDROCHLORIDE [Suspect]
     Indication: PRODUCT USED FOR UNKNOWN INDICATION
     Route: 065
  8. FLUCONAZOLE [Suspect]
     Indication: PRODUCT USED FOR UNKNOWN INDICATION
     Route: 065
  9. POTASSIUM GLUCONATE TAB [Concomitant]
     Route: 065
  10. CRAVIT [Suspect]
     Indication: MEDIASTINAL ABSCESS
     Route: 041

REACTIONS (4)
  - HAEMOGLOBIN DECREASED [None]
  - DRUG ERUPTION [None]
  - BLOOD URINE PRESENT [None]
  - PYREXIA [None]
